FAERS Safety Report 6370862-X (Version None)
Quarter: 2009Q3

REPORT INFORMATION
  Report Type: 
  Country: None (occurrence: None)
  Receive Date: 20090923
  Receipt Date: 20080103
  Transmission Date: 20100115
  Serious: No
  Sender: FDA-Public Use
  Company Number: US-ASTRAZENECA-2006UW24743

PATIENT
  Age: 17406 Day
  Sex: Male
  Weight: 93 kg

DRUGS (10)
  1. SEROQUEL [Suspect]
     Indication: BIPOLAR DISORDER
     Route: 048
  2. GLUCOPHAGE [Concomitant]
     Dates: start: 20060810
  3. LITHIUM [Concomitant]
     Dates: start: 20051110
  4. BENADRYL [Concomitant]
     Dates: start: 20051110
  5. TRICOR [Concomitant]
     Dates: start: 20051115
  6. OMEPRAZOLE [Concomitant]
     Dates: start: 20060810
  7. BACTRIM DS [Concomitant]
     Dates: start: 20060810
  8. LORTAB [Concomitant]
  9. PROTONIX [Concomitant]
  10. NEXIUM [Concomitant]

REACTIONS (20)
  - CHEST PAIN [None]
  - DIABETES MELLITUS [None]
  - DYSPEPSIA [None]
  - DYSURIA [None]
  - EAR PAIN [None]
  - FLANK PAIN [None]
  - FURUNCLE [None]
  - HYPERTRIGLYCERIDAEMIA [None]
  - HYPOAESTHESIA [None]
  - NECK MASS [None]
  - NECK PAIN [None]
  - OBESITY [None]
  - REFLUX OESOPHAGITIS [None]
  - SNORING [None]
  - SOMNOLENCE [None]
  - STAPHYLOCOCCAL INFECTION [None]
  - TENDERNESS [None]
  - VISION BLURRED [None]
  - VISUAL IMPAIRMENT [None]
  - WEIGHT DECREASED [None]
